FAERS Safety Report 15574111 (Version 1)
Quarter: 2018Q4

REPORT INFORMATION
  Report Type: Spontaneous
  Country: IT (occurrence: IT)
  Receive Date: 20181101
  Receipt Date: 20181101
  Transmission Date: 20190205
  Serious: Yes (Hospitalization)
  Sender: FDA-Public Use
  Company Number: IT-AUROBINDO-AUR-APL-2018-052936

PATIENT
  Age: 50 Year
  Sex: Male

DRUGS (1)
  1. TAMSULOSIN [Suspect]
     Active Substance: TAMSULOSIN
     Indication: MEDICATION ERROR
     Dosage: 1.2 MILLIGRAM, TOTAL
     Route: 048
     Dates: start: 20181015, end: 20181015

REACTIONS (2)
  - Abdominal pain [Recovering/Resolving]
  - Medication error [Recovering/Resolving]
